FAERS Safety Report 5976752-6 (Version None)
Quarter: 2008Q4

REPORT INFORMATION
  Report Type: 
  Country: None (occurrence: None)
  Receive Date: 20081128
  Receipt Date: 20081118
  Transmission Date: 20090506
  Serious: Yes (Hospitalization)
  Sender: FDA-Public Use
  Company Number: TAP2008Q00977

PATIENT
  Age: 79 Year
  Sex: Female
  Weight: 57.3 kg

DRUGS (1)
  1. PREVACID [Suspect]
     Indication: GASTROOESOPHAGEAL REFLUX DISEASE
     Dosage: 60 MG (30 MG, 2 IN 1 D), PER ORAL
     Route: 048

REACTIONS (2)
  - LIP AND/OR ORAL CAVITY CANCER [None]
  - MEDICATION ERROR [None]
